FAERS Safety Report 8244394-8 (Version None)
Quarter: 2012Q1

REPORT INFORMATION
  Report Type: 
  Country: None (occurrence: None)
  Receive Date: 20120329
  Receipt Date: 20120326
  Transmission Date: 20120608
  Serious: Yes (Other)
  Sender: FDA-Public Use
  Company Number: US-PFIZER INC-2012058920

PATIENT
  Sex: Female
  Weight: 57 kg

DRUGS (5)
  1. PROAIR HFA [Concomitant]
     Indication: EMPHYSEMA
     Dosage: UNK, 4X/DAY
  2. LISINOPRIL [Concomitant]
     Indication: HYPERTENSION
     Dosage: 10 MG DAILY
  3. CHANTIX [Suspect]
     Indication: SMOKING CESSATION THERAPY
     Dosage: 1 MG, 2X/DAY
     Route: 048
     Dates: start: 20120301, end: 20120303
  4. SPIRIVA [Concomitant]
     Indication: EMPHYSEMA
     Dosage: DAILY
  5. SYMBICORT [Concomitant]
     Indication: EMPHYSEMA
     Dosage: 160/4.5 MCG, 2X/DAY

REACTIONS (8)
  - GAIT DISTURBANCE [None]
  - ACTIVITIES OF DAILY LIVING IMPAIRED [None]
  - FEELING ABNORMAL [None]
  - DYSPNOEA [None]
  - HEADACHE [None]
  - ASTHENIA [None]
  - NAUSEA [None]
  - EMPHYSEMA [None]
